FAERS Safety Report 6106524-3 (Version None)
Quarter: 2009Q1

REPORT INFORMATION
  Report Type: 
  Country: None (occurrence: None)
  Receive Date: 20090304
  Receipt Date: 20090226
  Transmission Date: 20090719
  Serious: Yes (Death)
  Sender: FDA-Public Use
  Company Number: 2009SP004397

PATIENT
  Age: 62 Year
  Sex: Male
  Weight: 133 kg

DRUGS (13)
  1. TEMOZOLOMIDE [Suspect]
     Indication: GLIOBLASTOMA MULTIFORME
     Dosage: 200 MG/M2, QD; PO
     Route: 048
     Dates: start: 20090206, end: 20090210
  2. IRINOTECAN HCL [Suspect]
     Indication: GLIOBLASTOMA MULTIFORME
     Dosage: 125 MG/M2, QOW; IV
     Route: 042
     Dates: start: 20090206
  3. BEVACIZUMAB [Suspect]
     Indication: GLIOBLASTOMA MULTIFORME
     Dosage: 10 MG/KG, QOW; IV
     Route: 042
     Dates: start: 20090206
  4. DEXAMETHASONE [Concomitant]
  5. CADUET [Concomitant]
  6. K-DUR [Concomitant]
  7. ATENOLOL [Concomitant]
  8. LASIX [Concomitant]
  9. FLEXERIL [Concomitant]
  10. KEPPRA [Concomitant]
  11. LISINOPRIL [Concomitant]
  12. DOXAZOSIN MESYLATE [Concomitant]
  13. ZANTAC [Concomitant]

REACTIONS (1)
  - CARDIAC ARREST [None]
